FAERS Safety Report 10871153 (Version 1)
Quarter: 2015Q1

REPORT INFORMATION
  Report Type: Spontaneous
  Country: AT (occurrence: AT)
  Receive Date: 20150226
  Receipt Date: 20150226
  Transmission Date: 20150721
  Serious: Yes (Other)
  Sender: FDA-Public Use
  Company Number: AT-TEVA-540320ISR

PATIENT
  Sex: Male

DRUGS (1)
  1. FINASTERID RATIOPHARM 5 MG FILMTABLETTEN [Suspect]
     Active Substance: FINASTERIDE

REACTIONS (5)
  - Product formulation issue [Unknown]
  - Drug effect decreased [Unknown]
  - Prostatic specific antigen increased [Unknown]
  - Drug intolerance [Unknown]
  - Pruritus [Unknown]
